FAERS Safety Report 9894442 (Version 1)
Quarter: 2014Q1

REPORT INFORMATION
  Report Type: Spontaneous
  Country: US (occurrence: US)
  Receive Date: 20140213
  Receipt Date: 20140213
  Transmission Date: 20141002
  Serious: Yes (Hospitalization)
  Sender: FDA-Public Use
  Company Number: US-BRISTOL-MYERS SQUIBB COMPANY-20124574

PATIENT
  Age: 75 Year
  Sex: Male

DRUGS (17)
  1. YERVOY [Suspect]
     Dosage: 4INF. BETWEEN 13DEC12 AND MAR13 ?2 COURSE, 1ST INFUSION ON 13DEC13 AND 2ND INFUSION ON 13JAN14.
     Dates: start: 20121213
  2. CARDIAZEM [Concomitant]
  3. NEXIUM [Concomitant]
  4. DILTIAZEM HCL [Concomitant]
  5. VALIUM [Concomitant]
     Indication: ANXIETY
  6. TRAMADOL [Concomitant]
     Indication: PAIN
  7. AMIODARONE [Concomitant]
     Indication: ATRIAL FIBRILLATION
     Dosage: 1DF:400 UNIT NOS
  8. AMBIEN [Concomitant]
  9. PHENERGAN [Concomitant]
     Indication: NAUSEA
  10. TESSALON PERLE [Concomitant]
     Indication: COUGH
  11. BENADRYL [Concomitant]
     Indication: PYREXIA
  12. BENADRYL [Concomitant]
     Indication: PRURITUS
  13. TYLENOL [Concomitant]
     Indication: PRURITUS
  14. TYLENOL [Concomitant]
     Indication: PYREXIA
  15. ZOFRAN [Concomitant]
     Indication: NAUSEA
  16. CHLORZOXAZONE [Concomitant]
     Indication: MUSCLE SPASMS
  17. LOMOTIL [Concomitant]
     Indication: DIARRHOEA

REACTIONS (2)
  - Neutropenia [Unknown]
  - Pyrexia [Unknown]
